FAERS Safety Report 13141349 (Version 1)
Quarter: 2017Q1

REPORT INFORMATION
  Report Type: Report from Study
  Country: US (occurrence: US)
  Receive Date: 20170124
  Receipt Date: 20170124
  Transmission Date: 20170428
  Serious: Yes (Other)
  Sender: FDA-Public Use
  Company Number: US-MALLINCKRODT-T201606449

PATIENT
  Age: 78 Year
  Sex: Female

DRUGS (3)
  1. REPOSITORY CORTICOTROPIN INJECTION [Suspect]
     Active Substance: CORTICOTROPIN
     Indication: RHEUMATOID ARTHRITIS
     Dosage: 120UNITS/1.5 ML, ONCE WEEKLY (WEDNESDAY)
     Route: 030
     Dates: start: 20160822, end: 2016
  2. REPOSITORY CORTICOTROPIN INJECTION [Suspect]
     Active Substance: CORTICOTROPIN
     Indication: MULTIPLE SCLEROSIS
     Dosage: 120UNITS/1.5 ML, ONCE WEEKLY (WEDNESDAY)
     Route: 030
     Dates: start: 20160828, end: 20161206
  3. REPOSITORY CORTICOTROPIN INJECTION [Suspect]
     Active Substance: CORTICOTROPIN
     Dosage: 80 UNITS/1 ML, 2 X PER WEEK
     Route: 058
     Dates: start: 20161028

REACTIONS (11)
  - Dyspnoea [Unknown]
  - Migraine [Unknown]
  - Gait disturbance [Not Recovered/Not Resolved]
  - Urticaria [Unknown]
  - Upper respiratory tract infection [Not Recovered/Not Resolved]
  - Peripheral swelling [Not Recovered/Not Resolved]
  - Rash [Unknown]
  - Headache [Not Recovered/Not Resolved]
  - Swollen tongue [Unknown]
  - Dizziness [Not Recovered/Not Resolved]
  - Swelling face [Not Recovered/Not Resolved]

NARRATIVE: CASE EVENT DATE: 20161126
